FAERS Safety Report 13669200 (Version 1)
Quarter: 2017Q2

REPORT INFORMATION
  Report Type: Spontaneous
  Country: US (occurrence: US)
  Receive Date: 20170620
  Receipt Date: 20170620
  Transmission Date: 20170830
  Serious: No
  Sender: FDA-Public Use
  Company Number: US-BAYER-2017-107337

PATIENT
  Age: 87 Year
  Sex: Male
  Weight: 77 kg

DRUGS (6)
  1. CLARITIN-D 24 HOUR [Suspect]
     Active Substance: LORATADINE\PSEUDOEPHEDRINE SULFATE
     Indication: VIRAL UPPER RESPIRATORY TRACT INFECTION
  2. CLARITIN [Suspect]
     Active Substance: LORATADINE
     Indication: VIRAL UPPER RESPIRATORY TRACT INFECTION
  3. CLARITIN-D 24 HOUR [Suspect]
     Active Substance: LORATADINE\PSEUDOEPHEDRINE SULFATE
     Indication: HYPERSENSITIVITY
     Dosage: 1 DF, PRN
     Route: 048
  4. CLARITIN [Suspect]
     Active Substance: LORATADINE
     Indication: RHINORRHOEA
  5. CLARITIN [Suspect]
     Active Substance: LORATADINE
     Indication: HYPERSENSITIVITY
     Dosage: 2-3 DF AT A TIME
     Route: 048
     Dates: start: 2017, end: 2017
  6. CLARITIN-D 24 HOUR [Suspect]
     Active Substance: LORATADINE\PSEUDOEPHEDRINE SULFATE
     Indication: RHINORRHOEA

REACTIONS (3)
  - Drug ineffective [None]
  - Expired product administered [None]
  - Incorrect dose administered [None]

NARRATIVE: CASE EVENT DATE: 2017
